FAERS Safety Report 5628080-6 (Version None)
Quarter: 2008Q1

REPORT INFORMATION
  Report Type: 
  Country: None (occurrence: None)
  Receive Date: 20080215
  Receipt Date: 20080212
  Transmission Date: 20080703
  Serious: No
  Sender: FDA-Public Use
  Company Number: DE-ASTRAZENECA-2008PK00304

PATIENT
  Age: 59 Year
  Sex: Female

DRUGS (3)
  1. SEROQUEL [Suspect]
     Route: 048
  2. ERGENYL [Suspect]
     Route: 048
  3. TRUXAL [Concomitant]
     Route: 048

REACTIONS (1)
  - LEUKOPENIA [None]
